FAERS Safety Report 12286790 (Version 1)
Quarter: 2016Q2

REPORT INFORMATION
  Report Type: Spontaneous
  Country: None (occurrence: None)
  Receive Date: 20160419
  Receipt Date: 20160419
  Transmission Date: 20160815
  Serious: No
  Sender: FDA-Public Use
  Company Number: None

PATIENT
  Age: 64 Year
  Sex: Female

DRUGS (1)
  1. GLEEVEC [Suspect]
     Active Substance: IMATINIB MESYLATE

REACTIONS (4)
  - Swelling [None]
  - Diarrhoea [None]
  - Muscle spasms [None]
  - Swelling face [None]

NARRATIVE: CASE EVENT DATE: 20160418
